FAERS Safety Report 10741185 (Version 1)
Quarter: 2015Q1

REPORT INFORMATION
  Report Type: Spontaneous
  Country: US (occurrence: US)
  Receive Date: 20150127
  Receipt Date: 20150127
  Transmission Date: 20150721
  Serious: Yes (Death)
  Sender: FDA-Public Use
  Company Number: US-009507513-1501USA009416

PATIENT
  Age: 31 Year
  Sex: Male

DRUGS (2)
  1. CORICIDIN HBP COUGH AND COLD [Suspect]
     Active Substance: CHLORPHENIRAMINE MALEATE\DEXTROMETHORPHAN HYDROBROMIDE
     Indication: PRODUCT USED FOR UNKNOWN INDICATION
     Dosage: UNK, UNKNOWN
     Route: 048
  2. DEXTROMETHORPHAN [Suspect]
     Active Substance: DEXTROMETHORPHAN
     Indication: PRODUCT USED FOR UNKNOWN INDICATION
     Dosage: UNK, UNKNOWN
     Route: 048

REACTIONS (8)
  - Agitation [Unknown]
  - Toxicity to various agents [Fatal]
  - Physical assault [Unknown]
  - Intentional overdose [Unknown]
  - Stab wound [Fatal]
  - Unresponsive to stimuli [Unknown]
  - Completed suicide [Fatal]
  - Social avoidant behaviour [Unknown]
